FAERS Safety Report 16686914 (Version 1)
Quarter: 2019Q3

REPORT INFORMATION
  Report Type: Spontaneous
  Country: US (occurrence: US)
  Receive Date: 20190809
  Receipt Date: 20190809
  Transmission Date: 20191004
  Serious: No
  Sender: FDA-Public Use
  Company Number: US-HIKMA PHARMACEUTICALS USA INC.-US-H14001-19-02760

PATIENT
  Sex: Male

DRUGS (1)
  1. CLOTRIMAZOLE TROCHE [Suspect]
     Active Substance: CLOTRIMAZOLE
     Indication: TONGUE FUNGAL INFECTION
     Route: 002
     Dates: start: 20190228, end: 20190417

REACTIONS (3)
  - Rash [Not Recovered/Not Resolved]
  - Pruritus [Not Recovered/Not Resolved]
  - Rash vesicular [Not Recovered/Not Resolved]

NARRATIVE: CASE EVENT DATE: 2019
